FAERS Safety Report 16124290 (Version 1)
Quarter: 2019Q1

REPORT INFORMATION
  Report Type: Report from Study
  Country: DE (occurrence: DE)
  Receive Date: 20190327
  Receipt Date: 20190327
  Transmission Date: 20190418
  Serious: Yes (Other)
  Sender: FDA-Public Use
  Company Number: PHHY2019DE061810

PATIENT
  Sex: Female
  Weight: 62 kg

DRUGS (4)
  1. KISQALI [Suspect]
     Active Substance: RIBOCICLIB
     Dosage: UNK
     Route: 048
  2. RAMIPRIL + HIDROCLOROTIAZIDA [Concomitant]
     Active Substance: HYDROCHLOROTHIAZIDE\RAMIPRIL
     Indication: HYPERTENSION
     Dosage: 1 DF, RAMIPRIL 1X5/ HCT 25 ONCE IN THE MORNING
     Route: 048
     Dates: end: 201903
  3. LETROZOLE. [Suspect]
     Active Substance: LETROZOLE
     Indication: BREAST CANCER METASTATIC
     Dosage: 2.5 MG, PER DAY
     Route: 048
     Dates: start: 20190105
  4. KISQALI [Suspect]
     Active Substance: RIBOCICLIB
     Indication: BREAST CANCER METASTATIC
     Dosage: 600 MG, (PER DAY (21 DAYS OF INTAKE, 7 DAYS PAUSE)
     Route: 048
     Dates: start: 20190105, end: 20190126

REACTIONS (4)
  - Syncope [Recovered/Resolved]
  - Leukopenia [Unknown]
  - Pneumonia [Recovered/Resolved]
  - Hypotension [Unknown]

NARRATIVE: CASE EVENT DATE: 20190307
